FAERS Safety Report 4575839-2 (Version None)
Quarter: 2005Q1

REPORT INFORMATION
  Report Type: 
  Country: None (occurrence: None)
  Receive Date: 20050201
  Receipt Date: 20050201
  Transmission Date: 20050727
  Serious: No
  Sender: FDA-Public Use
  Company Number: None

PATIENT
  Age: 73 Year
  Sex: Female
  Weight: 54.8852 kg

DRUGS (10)
  1. ARANESP [Suspect]
  2. EPOGEN [Suspect]
  3. XALATAN [Concomitant]
  4. TRICOR [Concomitant]
  5. CALCITRIOL [Concomitant]
  6. NORVASC [Concomitant]
  7. DIOVAN [Concomitant]
  8. PRAVACHOL [Concomitant]
  9. AVANDIA [Concomitant]
  10. BUMEX [Concomitant]

REACTIONS (6)
  - ASTHENIA [None]
  - FEELING COLD [None]
  - FEELING OF BODY TEMPERATURE CHANGE [None]
  - MALAISE [None]
  - PRURITUS [None]
  - RASH GENERALISED [None]
